FAERS Safety Report 7046338-3 (Version None)
Quarter: 2010Q4

REPORT INFORMATION
  Report Type: 
  Country: None (occurrence: None)
  Receive Date: 20101014
  Receipt Date: 20101004
  Transmission Date: 20110411
  Serious: Yes (Death)
  Sender: FDA-Public Use
  Company Number: GXKR2010CH09078

PATIENT

DRUGS (1)
  1. VANCOMYCIN [Suspect]
     Indication: STAPHYLOCOCCAL INFECTION
     Route: 065

REACTIONS (1)
  - DRUG INEFFECTIVE [None]
